FAERS Safety Report 16174455 (Version 1)
Quarter: 2019Q2

REPORT INFORMATION
  Report Type: Spontaneous
  Country: US (occurrence: US)
  Receive Date: 20190408
  Receipt Date: 20190408
  Transmission Date: 20190711
  Serious: Yes (Life-Threatening, Hospitalization)
  Sender: FDA-Public Use
  Company Number: None

PATIENT
  Age: 22 Year
  Sex: Male
  Weight: 76.5 kg

DRUGS (3)
  1. TIANAA WHITE KRATOM [Suspect]
     Active Substance: TIANEPTINE
  2. LEXAPRO [Concomitant]
     Active Substance: ESCITALOPRAM OXALATE
  3. TIANAA RED KRATOM [Suspect]
     Active Substance: TIANEPTINE
     Indication: EUPHORIC MOOD
     Dosage: ?          QUANTITY:15 CAPSULE(S);?
     Route: 048
     Dates: start: 20160610, end: 20190406

REACTIONS (1)
  - Drug withdrawal syndrome [None]

NARRATIVE: CASE EVENT DATE: 20160610
